FAERS Safety Report 10537674 (Version 3)
Quarter: 2018Q3

REPORT INFORMATION
  Report Type: Report from Study
  Country: BR (occurrence: BR)
  Receive Date: 20141023
  Receipt Date: 20180822
  Transmission Date: 20181010
  Serious: Yes (Other)
  Sender: FDA-Public Use
  Company Number: PHHY2014BR136829

PATIENT
  Sex: Female
  Weight: 59 kg

DRUGS (14)
  1. EXFORGE HCT [Suspect]
     Active Substance: AMLODIPINE BESYLATE\HYDROCHLOROTHIAZIDE\VALSARTAN
     Indication: BLOOD PRESSURE ABNORMAL
     Dosage: 1 DF (VALSARTAN 160MG, AMLODIPINE 5MG, HYDROCHLOROTHIAZIDE 25MG) QD
     Route: 048
     Dates: start: 201407, end: 201407
  2. SOMALGIN [Concomitant]
     Active Substance: ASPIRIN\DIHYDROXYALUMINUM AMINOACETATE ANHYDROUS\MAGNESIUM CARBONATE
     Dosage: UNK
     Dates: start: 2008
  3. SUSTRATE [Concomitant]
     Active Substance: PROPATYL NITRATE
     Indication: CHEST PAIN
     Dosage: 20 MG, UNK (19 YEARS AGO)
     Route: 065
     Dates: start: 199406
  4. SIMVASTATIN. [Concomitant]
     Active Substance: SIMVASTATIN
     Indication: CARDIAC DISORDER
     Dosage: 20 MG, UNK (10 YEARS AGO)
     Route: 048
     Dates: start: 2008
  5. DIOVAN [Suspect]
     Active Substance: VALSARTAN
     Indication: HYPERTENSION
     Dosage: 80 MG, QD
     Route: 048
     Dates: start: 2008, end: 2009
  6. SOMALGIN [Concomitant]
     Active Substance: ASPIRIN\DIHYDROXYALUMINUM AMINOACETATE ANHYDROUS\MAGNESIUM CARBONATE
     Indication: BLOOD CHOLESTEROL ABNORMAL
     Dosage: 100 MG, UNK
     Route: 065
     Dates: start: 199406
  7. DIOVAN HCT [Suspect]
     Active Substance: HYDROCHLOROTHIAZIDE\VALSARTAN
     Indication: HYPERTENSION
     Dosage: 1 DF (VALSARTAN 160MG, HYDROCHLOROTHIAZIDE12.5MG) QD (IN THE MORNING)
     Route: 048
     Dates: start: 2006, end: 201407
  8. ATENOLOL. [Concomitant]
     Active Substance: ATENOLOL
     Indication: HYPERTENSION
     Dosage: 25 MG, UNK (STARTED 10 YEARS AGO)
     Route: 048
     Dates: end: 201301
  9. ATENOLOL. [Concomitant]
     Active Substance: ATENOLOL
     Dosage: 50 MG, UNK
     Dates: start: 2008
  10. SUSTRATE [Concomitant]
     Active Substance: PROPATYL NITRATE
     Indication: COAGULOPATHY
  11. SUSTRATE [Concomitant]
     Active Substance: PROPATYL NITRATE
     Indication: MYOCARDIAL INFARCTION
  12. DIOVAN AMLO FIX [Suspect]
     Active Substance: AMLODIPINE\VALSARTAN
     Indication: HYPERTENSION
     Dosage: 1 DF, (5 MG AMLODIPINE AND 160 MG VALSARTAN) QD
     Route: 048
     Dates: start: 2010
  13. DIOVAN [Suspect]
     Active Substance: VALSARTAN
     Dosage: 180 MG, QD
     Route: 048
  14. SIMVASTATIN. [Concomitant]
     Active Substance: SIMVASTATIN
     Indication: CARDIAC DISORDER

REACTIONS (18)
  - Thyroid mass [Recovering/Resolving]
  - Vein disorder [Recovering/Resolving]
  - Vision blurred [Recovering/Resolving]
  - Blood pressure decreased [Recovering/Resolving]
  - Nasopharyngitis [Unknown]
  - Thyroid cyst [Recovering/Resolving]
  - Blood pressure increased [Recovering/Resolving]
  - Weight decreased [Recovering/Resolving]
  - Hypersensitivity [Recovering/Resolving]
  - Hypoaesthesia oral [Unknown]
  - Malaise [Unknown]
  - Dyspnoea [Unknown]
  - Headache [Recovering/Resolving]
  - Post procedural complication [Recovering/Resolving]
  - Peripheral swelling [Recovering/Resolving]
  - Cataract [Recovering/Resolving]
  - Chest pain [Recovering/Resolving]
  - Blood pressure fluctuation [Recovering/Resolving]

NARRATIVE: CASE EVENT DATE: 2013
